FAERS Safety Report 6394548-0 (Version None)
Quarter: 2009Q4

REPORT INFORMATION
  Report Type: 
  Country: None (occurrence: None)
  Receive Date: 20091009
  Receipt Date: 20091001
  Transmission Date: 20100525
  Serious: Yes (Hospitalization)
  Sender: FDA-Public Use
  Company Number: US-BAYER-200934886NA

PATIENT
  Age: 23 Year
  Sex: Female
  Weight: 77 kg

DRUGS (1)
  1. MIRENA [Suspect]
     Indication: DRUG USE FOR UNKNOWN INDICATION
     Dosage: CONTINUOUS
     Route: 015
     Dates: start: 20090601, end: 20090930

REACTIONS (4)
  - APHASIA [None]
  - BLINDNESS [None]
  - FAMILIAL HEMIPLEGIC MIGRAINE [None]
  - PARALYSIS [None]
